FAERS Safety Report 9486391 (Version 1)
Quarter: 2013Q3

REPORT INFORMATION
  Report Type: Spontaneous
  Country: US (occurrence: US)
  Receive Date: 20130829
  Receipt Date: 20130829
  Transmission Date: 20140515
  Serious: Yes (Other)
  Sender: FDA-Public Use
  Company Number: US-ROCHE-1268136

PATIENT
  Age: 63 Year
  Sex: Male

DRUGS (1)
  1. XOLAIR [Suspect]
     Indication: ASTHMA
     Dosage: EVERY 2 WKS, 250 IN ONE ARM, 125 IN THE OTHER ARM
     Route: 065
     Dates: start: 2005

REACTIONS (2)
  - Knee operation [Recovered/Resolved]
  - Sinusitis [Unknown]
